FAERS Safety Report 6316845-7 (Version None)
Quarter: 2009Q3

REPORT INFORMATION
  Report Type: 
  Country: None (occurrence: None)
  Receive Date: 20090820
  Receipt Date: 20090813
  Transmission Date: 20100115
  Serious: Yes (Hospitalization)
  Sender: FDA-Public Use
  Company Number: NL-ROCHE-650174

PATIENT
  Sex: Female
  Weight: 47 kg

DRUGS (4)
  1. TAMIFLU [Suspect]
     Route: 048
     Dates: start: 20090807, end: 20090810
  2. ORFIRIL [Concomitant]
     Route: 048
     Dates: start: 20081215
  3. TRILEPTAL [Concomitant]
     Route: 048
     Dates: start: 20090715
  4. FRISIUM [Concomitant]
     Route: 048
     Dates: start: 20090715

REACTIONS (1)
  - STATUS EPILEPTICUS [None]
